FAERS Safety Report 18565644 (Version 1)
Quarter: 2020Q4

REPORT INFORMATION
  Report Type: Spontaneous
  Country: US (occurrence: US)
  Receive Date: 20201201
  Receipt Date: 20201201
  Transmission Date: 20210114
  Serious: No
  Sender: FDA-Public Use
  Company Number: None

PATIENT
  Age: 28 Year
  Sex: Male

DRUGS (1)
  1. INSULIN ASPART [Suspect]
     Active Substance: INSULIN ASPART
     Route: 058
     Dates: start: 20201023

REACTIONS (2)
  - Blood glucose abnormal [None]
  - Product substitution issue [None]

NARRATIVE: CASE EVENT DATE: 20201026
